FAERS Safety Report 6347994-5 (Version None)
Quarter: 2009Q3

REPORT INFORMATION
  Report Type: 
  Country: None (occurrence: None)
  Receive Date: 20090910
  Receipt Date: 20090901
  Transmission Date: 20100115
  Serious: Yes (Hospitalization, Disabling, Other)
  Sender: FDA-Public Use
  Company Number: US-CELGENEUS-163-21880-09072261

PATIENT
  Sex: Female

DRUGS (2)
  1. REVLIMID [Suspect]
     Route: 048
     Dates: start: 20090716
  2. REVLIMID [Suspect]
     Route: 048
     Dates: start: 20090824

REACTIONS (6)
  - CONTUSION [None]
  - DIZZINESS [None]
  - FEBRILE NEUTROPENIA [None]
  - GINGIVAL BLEEDING [None]
  - PLATELET COUNT DECREASED [None]
  - RASH PRURITIC [None]
